FAERS Safety Report 14146651 (Version 1)
Quarter: 2017Q4

REPORT INFORMATION
  Report Type: Spontaneous
  Country: US (occurrence: US)
  Receive Date: 20171031
  Receipt Date: 20171031
  Transmission Date: 20180321
  Serious: No
  Sender: FDA-Public Use
  Company Number: US-PERRIGO-16US021503

PATIENT
  Sex: Female
  Weight: 81.63 kg

DRUGS (3)
  1. MELATONIN [Concomitant]
     Active Substance: MELATONIN
     Indication: SUPPLEMENTATION THERAPY
     Dosage: UNK
     Route: 048
     Dates: start: 20161103
  2. DOXYLAMINE SUCCINATE. [Suspect]
     Active Substance: DOXYLAMINE SUCCINATE
     Indication: SLEEP DISORDER
     Dosage: 25 MG, QHS
     Route: 048
     Dates: start: 20161029
  3. ANTIHYPERTENSIVES [Concomitant]
     Active Substance: UNSPECIFIED INGREDIENT
     Indication: HYPERTENSION
     Dosage: UNK
     Route: 065

REACTIONS (1)
  - Drug ineffective [Recovered/Resolved]

NARRATIVE: CASE EVENT DATE: 20161029
